FAERS Safety Report 4379900-7 (Version None)
Quarter: 2004Q2

REPORT INFORMATION
  Report Type: 
  Country: None (occurrence: None)
  Receive Date: 20040614
  Receipt Date: 20040601
  Transmission Date: 20050107
  Serious: Yes (Hospitalization, Other)
  Sender: FDA-Public Use
  Company Number: 2004214556JP

PATIENT
  Age: 35 Year
  Sex: Female
  Weight: 46 kg

DRUGS (2)
  1. HALCION [Suspect]
     Indication: SLEEP DISORDER
     Dosage: 27.5 G/DAY, ORAL
     Route: 048
  2. CHLORPROTHIXENE (CHLORPROTHIXENE) [Suspect]
     Dosage: 500 MG, ORAL
     Route: 048
     Dates: start: 19890201, end: 19890512

REACTIONS (7)
  - DRUG TOXICITY [None]
  - GASTRIC ULCER [None]
  - HAEMODIALYSIS [None]
  - OVERDOSE [None]
  - RENAL FAILURE ACUTE [None]
  - RHABDOMYOLYSIS [None]
  - SUICIDE ATTEMPT [None]
